FAERS Safety Report 15416672 (Version 2)
Quarter: 2018Q3

REPORT INFORMATION
  Report Type: Spontaneous
  Country: HR (occurrence: HR)
  Receive Date: 20180924
  Receipt Date: 20180928
  Transmission Date: 20181010
  Serious: Yes (Hospitalization)
  Sender: FDA-Public Use
  Company Number: HR-TEVA-2018-HR-957530

PATIENT
  Age: 36 Year
  Sex: Male
  Weight: 86 kg

DRUGS (3)
  1. PHEMITON [Concomitant]
     Active Substance: MEPHOBARBITAL
     Indication: BRAIN NEOPLASM MALIGNANT
     Dosage: 150 MILLIGRAM DAILY;
     Route: 048
  2. TEGRETOL XR [Suspect]
     Active Substance: CARBAMAZEPINE
     Indication: BRAIN NEOPLASM MALIGNANT
     Dosage: 800 MILLIGRAM DAILY;
     Route: 048
     Dates: start: 20180904
  3. FRISIUM [Concomitant]
     Active Substance: CLOBAZAM
     Indication: BRAIN NEOPLASM MALIGNANT
     Route: 065
     Dates: start: 2013

REACTIONS (4)
  - Erythema [Recovered/Resolved with Sequelae]
  - Dyspepsia [Recovered/Resolved with Sequelae]
  - Oedema mucosal [Recovered/Resolved with Sequelae]
  - Rash [Recovered/Resolved with Sequelae]

NARRATIVE: CASE EVENT DATE: 201809
